FAERS Safety Report 9668025 (Version 1)
Quarter: 2013Q4

REPORT INFORMATION
  Report Type: Spontaneous
  Country: RU (occurrence: RU)
  Receive Date: 20131104
  Receipt Date: 20131104
  Transmission Date: 20140711
  Serious: Yes (Other)
  Sender: FDA-Public Use
  Company Number: RU-VIIV HEALTHCARE LIMITED-B0938836A

PATIENT
  Age: 31 Year
  Sex: Male
  Weight: 125 kg

DRUGS (4)
  1. ABACAVIR [Suspect]
     Indication: HIV INFECTION
     Dosage: 600MG PER DAY
     Route: 048
     Dates: start: 20131018, end: 20131023
  2. LAMIVUDINE-HIV [Concomitant]
     Indication: HIV INFECTION
     Dosage: 300MG PER DAY
     Dates: start: 20121218
  3. PREZISTA [Concomitant]
     Indication: HIV INFECTION
     Dates: start: 20121218
  4. RITONAVIR [Concomitant]
     Indication: HIV INFECTION
     Dates: start: 20121218

REACTIONS (5)
  - Abdominal pain [Recovered/Resolved]
  - Nausea [Recovered/Resolved]
  - Dyspepsia [Recovering/Resolving]
  - Asthenia [Not Recovered/Not Resolved]
  - Chest pain [Recovering/Resolving]
